FAERS Safety Report 18006743 (Version 1)
Quarter: 2020Q3

REPORT INFORMATION
  Report Type: Report from Study
  Country: US (occurrence: US)
  Receive Date: 20200710
  Receipt Date: 20200710
  Transmission Date: 20201103
  Serious: No
  Sender: FDA-Public Use
  Company Number: NVSC2020US194830

PATIENT
  Sex: Male

DRUGS (1)
  1. ENTRESTO [Suspect]
     Active Substance: SACUBITRIL\VALSARTAN
     Indication: CARDIAC FAILURE
     Dosage: 50 MG, (1 24/26 MG IN THE MORNING AND 2 24/26 MG AT NIGHT)
     Route: 065

REACTIONS (2)
  - Malaise [Unknown]
  - Dizziness [Unknown]
